FAERS Safety Report 24769595 (Version 1)
Quarter: 2024Q4

REPORT INFORMATION
  Report Type: Spontaneous
  Country: ES (occurrence: ES)
  Receive Date: 20241224
  Receipt Date: 20241224
  Transmission Date: 20250115
  Serious: Yes (Other)
  Sender: TEVA
  Company Number: None

PATIENT
  Age: 51 Year
  Sex: Male

DRUGS (1)
  1. FINASTERIDE [Suspect]
     Active Substance: FINASTERIDE
     Indication: Alopecia
     Dosage: FINASTERIDE TEVA EFG , 28 TABLETS
     Route: 048

REACTIONS (6)
  - Varicocele [Unknown]
  - Abnormal loss of weight [Unknown]
  - Urticaria chronic [Unknown]
  - Pericarditis [Unknown]
  - Gastrointestinal disorder [Unknown]
  - Blepharitis [Unknown]

NARRATIVE: CASE EVENT DATE: 20170101
